FAERS Safety Report 21165633 (Version 1)
Quarter: 2022Q3

REPORT INFORMATION
  Report Type: Spontaneous
  Country: US (occurrence: None)
  Receive Date: 20220802
  Receipt Date: 20220802
  Transmission Date: 20221027
  Serious: Yes (unspecified)
  Sender: FDA-Public Use
  Company Number: None

PATIENT
  Age: 58 Year
  Sex: Male
  Weight: 168 kg

DRUGS (1)
  1. AMPHOTERICIN B [Suspect]
     Active Substance: AMPHOTERICIN B
     Indication: Pulmonary blastomycosis
     Dosage: FREQUENCY : DAILY;?
     Route: 042
     Dates: start: 20220726

REACTIONS (2)
  - Infusion site reaction [None]
  - Flushing [None]

NARRATIVE: CASE EVENT DATE: 20220728
